FAERS Safety Report 10885935 (Version 1)
Quarter: 2015Q1

REPORT INFORMATION
  Report Type: Spontaneous
  Country: US (occurrence: US)
  Receive Date: 20150304
  Receipt Date: 20150304
  Transmission Date: 20150721
  Serious: Yes (Death)
  Sender: FDA-Public Use
  Company Number: US-BANPHARM-20153630

PATIENT
  Age: 30 Year
  Sex: Female

DRUGS (6)
  1. DIPHENHYDRAMINE UNKNOWN PRODUCT [Suspect]
     Active Substance: DIPHENHYDRAMINE
  2. ZIPRASIDONE [Suspect]
     Active Substance: ZIPRASIDONE
  3. CYCLIC ANTIDEPRESSANT UNKNOWN [Suspect]
     Active Substance: UNSPECIFIED INGREDIENT
  4. CLONAZEPAM. [Suspect]
     Active Substance: CLONAZEPAM
  5. ANTIDEPRESSANT (SSRI) [Suspect]
     Active Substance: UNSPECIFIED INGREDIENT
  6. ANTICONVULSANT [Suspect]
     Active Substance: UNSPECIFIED INGREDIENT

REACTIONS (2)
  - Completed suicide [Fatal]
  - Exposure via ingestion [None]
